FAERS Safety Report 5057041-3 (Version None)
Quarter: 2006Q2

REPORT INFORMATION
  Report Type: 
  Country: None (occurrence: None)
  Receive Date: 20060622
  Receipt Date: 20050808
  Transmission Date: 20061013
  Serious: Yes (Other)
  Sender: FDA-Public Use
  Company Number: US-JNJFOC-20050802940

PATIENT
  Age: 74 Year
  Sex: Female
  Weight: 53.978 kg

DRUGS (1)
  1. DURAGESIC-100 [Suspect]
     Indication: HERPES ZOSTER
     Dosage: 25 UG/HR, 1 IN 72 HOUR, TRANSDERMAL
     Route: 062
     Dates: start: 20050501, end: 20050806

REACTIONS (4)
  - ABDOMINAL PAIN UPPER [None]
  - ANOREXIA [None]
  - MALAISE [None]
  - WEIGHT DECREASED [None]
